FAERS Safety Report 6813141-6 (Version None)
Quarter: 2010Q3

REPORT INFORMATION
  Report Type: 
  Country: None (occurrence: None)
  Receive Date: 20100701
  Receipt Date: 20100625
  Transmission Date: 20110219
  Serious: Yes (Other)
  Sender: FDA-Public Use
  Company Number: DE-PFIZER INC-2010079353

PATIENT
  Sex: Male

DRUGS (1)
  1. AMLODIPINE BESILATE [Suspect]
     Dosage: 10 MG, 1X/DAY

REACTIONS (3)
  - DRY MOUTH [None]
  - GINGIVAL HYPERPLASIA [None]
  - GINGIVITIS [None]
